FAERS Safety Report 20978182 (Version 1)
Quarter: 2022Q2

REPORT INFORMATION
  Report Type: Spontaneous
  Country: CH (occurrence: CH)
  Receive Date: 20220618
  Receipt Date: 20220618
  Transmission Date: 20220721
  Serious: Yes (Hospitalization)
  Sender: FDA-Public Use
  Company Number: None

PATIENT
  Age: 51 Year
  Sex: Male

DRUGS (34)
  1. ALBUTEROL SULFATE\IPRATROPIUM BROMIDE [Suspect]
     Active Substance: ALBUTEROL SULFATE\IPRATROPIUM BROMIDE
     Dosage: RESERVED
     Dates: start: 20220509
  2. ALBUTEROL SULFATE\IPRATROPIUM BROMIDE [Suspect]
     Active Substance: ALBUTEROL SULFATE\IPRATROPIUM BROMIDE
     Dosage: 1 DOSAGE FORMS DAILY; 2.5/0.5 MG 1X/D ; AS NECESSARY , DURATION : 1 DAY
     Dates: start: 20220421, end: 20220422
  3. LISINOPRIL [Suspect]
     Active Substance: LISINOPRIL
     Dosage: UNIT DOSE : 5 MG , FREQUENCY TIME : 1 DAY
     Dates: start: 20220503
  4. OXAZEPAM [Suspect]
     Active Substance: OXAZEPAM
     Dosage: UNIT DOSE : 15 MG , FREQUENCY TIME : 6 HOURS , DURATION : 23 DAYS
     Route: 048
     Dates: start: 20220405, end: 20220428
  5. OXAZEPAM [Suspect]
     Active Substance: OXAZEPAM
     Dosage: UNIT DOSE : 15 MG , FREQUENCY TIME : 12 HOURS , DURATION : 2 DAYS
     Route: 048
     Dates: start: 20220429, end: 20220501
  6. OXAZEPAM [Suspect]
     Active Substance: OXAZEPAM
     Dosage: UNIT DOSE : 30 MG , FREQUENCY TIME : 5 HOURS
     Route: 048
     Dates: start: 20220502
  7. OXAZEPAM [Suspect]
     Active Substance: OXAZEPAM
     Dosage: IN TOTAL , UNIT DOSE : 7.5 MG , FREQUENCY TIME : 1 TOTAL
     Route: 048
     Dates: start: 20220427, end: 20220427
  8. OXAZEPAM [Suspect]
     Active Substance: OXAZEPAM
     Dosage: IN TOTAL , UNIT DOSE : 7.5 MG , FREQUENCY TIME : 2 TOTAL
     Route: 048
     Dates: start: 20220430, end: 20220430
  9. OXAZEPAM [Suspect]
     Active Substance: OXAZEPAM
     Dosage: RESERVED, UNIT DOSE : 15 MG , FREQUENCY TIME : 4 HOURS
     Route: 048
     Dates: start: 20220502
  10. CLONIDINE [Suspect]
     Active Substance: CLONIDINE
     Dosage: UNIT DOSE : 450 MCG , FREQUENCY TIME : 1 DAY , DURATION : 14 DAYS
     Dates: start: 20220503, end: 20220517
  11. CLONIDINE [Suspect]
     Active Substance: CLONIDINE
     Dosage: UNIT DOSE : 375 MCG , FREQUENCY TIME : 1 DAY, DURATION : 1 DAY
     Dates: start: 20220518, end: 20220519
  12. CLONIDINE [Suspect]
     Active Substance: CLONIDINE
     Dosage: UNIT DOSE : 150 MCG , FREQUENCY TIME : 1 DAY
     Dates: start: 20220519
  13. DAFALGAN [Suspect]
     Active Substance: ACETAMINOPHEN
     Dosage: UNIT DOSE : 1000 MG , FREQUENCY TIME : 12 HOURS
     Dates: start: 20220502, end: 20220502
  14. DAFALGAN [Suspect]
     Active Substance: ACETAMINOPHEN
     Dosage: MAX 1000 MG 4X/D ; AS NECESSARY
     Dates: start: 20220503
  15. GLYCOPYRRONIUM\INDACATEROL [Suspect]
     Active Substance: GLYCOPYRRONIUM\INDACATEROL
     Dosage: 110/50 MCG 1X/D MAX ; AS NECESSARY
     Dates: start: 20220422
  16. RISPERDAL CONSTA [Concomitant]
     Active Substance: RISPERIDONE
     Dosage: AS NECESSARY
     Dates: end: 20220513
  17. RISPERDAL CONSTA [Concomitant]
     Active Substance: RISPERIDONE
     Dosage: IN TOTAL , FREQUENCY TIME : 1 TOTAL , UNIT DOSE : 1 DF
     Route: 042
     Dates: start: 20220427, end: 20220427
  18. RISPERDAL CONSTA [Concomitant]
     Active Substance: RISPERIDONE
     Route: 048
     Dates: start: 20220514
  19. ENOXAPARIN SODIUM [Concomitant]
     Active Substance: ENOXAPARIN SODIUM
     Dates: start: 20220426
  20. THIAMINE HYDROCHLORIDE [Concomitant]
     Active Substance: THIAMINE HYDROCHLORIDE
     Dosage: ADDITIONAL INFO : INGREDIENT (THIAMINE HYDROCHLORIDE): 100MG
     Dates: start: 20220422
  21. ALLOPURINOL [Concomitant]
     Active Substance: ALLOPURINOL
     Dates: end: 20220420
  22. ALLOPURINOL [Concomitant]
     Active Substance: ALLOPURINOL
     Dosage: DURATION : 6 DAYS
     Dates: start: 20220427, end: 20220503
  23. METFORMIN HYDROCHLORIDE [Concomitant]
     Active Substance: METFORMIN HYDROCHLORIDE
     Dates: end: 20220506
  24. FENOFIBRATE [Concomitant]
     Active Substance: FENOFIBRATE
     Dates: end: 20220503
  25. LASIX [Concomitant]
     Active Substance: FUROSEMIDE
     Dosage: DURATION : 3 DAYS
     Dates: start: 20220421, end: 20220424
  26. VITAMINS [Concomitant]
     Active Substance: VITAMINS
     Dates: start: 20220426, end: 20220503
  27. TRULICITY [Concomitant]
     Active Substance: DULAGLUTIDE
     Dosage: IN TOTAL , UNIT DOSE : 1 DF , FREQUENCY TIME : 1 TOTAL , ADDITIONAL INFO : INGREDIENT (DULAGLUTIDE):
     Dates: start: 20220426, end: 20220426
  28. POTASSIUM CHLORIDE [Concomitant]
     Active Substance: POTASSIUM CHLORIDE
     Dosage: DURATION : 2 DAYS
     Dates: start: 20220427, end: 20220429
  29. POTASSIUM CHLORIDE [Concomitant]
     Active Substance: POTASSIUM CHLORIDE
     Dosage: DURATION : 1 DAYS
     Dates: start: 20220509, end: 20220510
  30. POTASSIUM CHLORIDE [Concomitant]
     Active Substance: POTASSIUM CHLORIDE
     Dates: start: 20220516, end: 20220516
  31. PREDNISONE [Concomitant]
     Active Substance: PREDNISONE
     Dosage: DURATION : 5 DAYS
     Dates: start: 20220421, end: 20220426
  32. TORSEMIDE [Concomitant]
     Active Substance: TORSEMIDE
     Dosage: IN TOTAL , UNIT DOSE : 1 DF , FREQUENCY TIME : 1 TOTAL
     Dates: start: 20220422, end: 20220422
  33. TORSEMIDE [Concomitant]
     Active Substance: TORSEMIDE
     Dosage: DURATION : 2 DAYS
     Dates: start: 20220426, end: 20220428
  34. TOBREX [Concomitant]
     Active Substance: TOBRAMYCIN
     Dosage: ADDITIONAL INFO : INGREDIENT (TOBRAMYCIN): 3MG; , DURATION : 7 DAYS
     Dates: start: 20220422, end: 20220429

REACTIONS (1)
  - Confusional state [Not Recovered/Not Resolved]

NARRATIVE: CASE EVENT DATE: 20220503
